FAERS Safety Report 21990271 (Version 1)
Quarter: 2023Q1

REPORT INFORMATION
  Report Type: Spontaneous
  Country: US (occurrence: US)
  Receive Date: 20230214
  Receipt Date: 20230214
  Transmission Date: 20230417
  Serious: Yes (Other)
  Sender: FDA-Public Use
  Company Number: US-JUBILANT CADISTA PHARMACEUTICALS-2023JUB00071

PATIENT
  Age: 76 Year
  Sex: Male

DRUGS (1)
  1. PREDNISONE [Suspect]
     Active Substance: PREDNISONE
     Indication: Pemphigoid
     Dosage: UNK

REACTIONS (2)
  - Atrial fibrillation [Unknown]
  - Drug ineffective [Unknown]
